FAERS Safety Report 5028870-7 (Version None)
Quarter: 2006Q2

REPORT INFORMATION
  Report Type: 
  Country: None (occurrence: None)
  Receive Date: 20060501
  Receipt Date: 20060315
  Transmission Date: 20061013
  Serious: No
  Sender: FDA-Public Use
  Company Number: 200611409US

PATIENT
  Age: 68 Year
  Sex: Female

DRUGS (4)
  1. KETEK [Suspect]
     Indication: SINUSITIS
     Dosage: 800 MG QD PO
     Route: 048
     Dates: start: 20060126, end: 20060127
  2. GLIMEPIRIDE (AMARYL) [Concomitant]
  3. TAMOXIFEN [Concomitant]
  4. SIMVASTATIN [Concomitant]

REACTIONS (2)
  - DISORIENTATION [None]
  - VISION BLURRED [None]
